FAERS Safety Report 9948964 (Version 2)
Quarter: 2014Q1

REPORT INFORMATION
  Report Type: Spontaneous
  Country: US (occurrence: US)
  Receive Date: 20140304
  Receipt Date: 20140317
  Transmission Date: 20141002
  Serious: Yes (Other)
  Sender: FDA-Public Use
  Company Number: US-BAYER-2014-029219

PATIENT
  Age: 53 Year
  Sex: Female
  Weight: 63.49 kg

DRUGS (6)
  1. MIRENA [Suspect]
     Indication: MENORRHAGIA
     Dosage: 20 MCG/24HR, CONT
     Route: 015
     Dates: start: 20071129, end: 2010
  2. ALTACE [Concomitant]
     Dosage: 1.25 MG, UNK
  3. LAMICTAL [Concomitant]
     Dosage: 100 MG, UNK
  4. EFFEXOR XR [Concomitant]
     Dosage: 150 MG, UNK
  5. LIPITOR [Concomitant]
     Dosage: 20 MG, UNK
  6. METFORMIN [Concomitant]
     Dosage: 500 MG, UNK

REACTIONS (11)
  - Uterine perforation [None]
  - Genital haemorrhage [None]
  - Abdominal pain lower [None]
  - Pelvic pain [None]
  - Anxiety [None]
  - Stress [None]
  - Depression [None]
  - Device issue [None]
  - Injury [None]
  - Pain [None]
  - Emotional distress [None]
